FAERS Safety Report 9136877 (Version 1)
Quarter: 2013Q1

REPORT INFORMATION
  Report Type: Spontaneous
  Country: US (occurrence: US)
  Receive Date: 20130304
  Receipt Date: 20130304
  Transmission Date: 20140127
  Serious: Yes (Other)
  Sender: FDA-Public Use
  Company Number: PHEH2013US004925

PATIENT
  Sex: Female

DRUGS (3)
  1. TASIGNA [Suspect]
     Dosage: 150 MG
     Route: 048
  2. INDERAL [Concomitant]
  3. AMBIEN [Concomitant]

REACTIONS (1)
  - Gait disturbance [Unknown]
